FAERS Safety Report 4786449-6 (Version None)
Quarter: 2005Q4

REPORT INFORMATION
  Report Type: 
  Country: None (occurrence: None)
  Receive Date: 20051003
  Receipt Date: 20050803
  Transmission Date: 20060501
  Serious: Yes (Hospitalization)
  Sender: FDA-Public Use
  Company Number: US-MERCK-0508USA01242

PATIENT
  Age: 46 Year
  Sex: Male
  Weight: 70 kg

DRUGS (11)
  1. VIOXX [Suspect]
     Indication: BACK PAIN
     Route: 048
     Dates: start: 19990601, end: 20040930
  2. VIOXX [Suspect]
     Indication: ARTHRITIS
     Route: 048
     Dates: start: 19990601, end: 20040930
  3. PERCOCET [Concomitant]
     Indication: BACK PAIN
     Route: 065
     Dates: start: 20010101
  4. PERCOCET [Concomitant]
     Indication: ARTHRITIS
     Route: 065
     Dates: start: 20010101
  5. ULTRACET [Concomitant]
     Indication: MUSCULOSKELETAL CHEST PAIN
     Route: 065
     Dates: start: 20010101
  6. FLEXERIL [Concomitant]
     Route: 065
  7. VICODIN [Concomitant]
     Route: 065
  8. DARVOCET-N 100 [Concomitant]
     Route: 065
  9. LORTAB [Concomitant]
     Route: 065
  10. [THERAPY UNSPECIFIED] [Concomitant]
     Route: 065
     Dates: start: 20040101
  11. ROXICODONE [Concomitant]
     Route: 065

REACTIONS (5)
  - ANXIETY [None]
  - BLOOD CHOLESTEROL INCREASED [None]
  - BLOOD PRESSURE INCREASED [None]
  - DEPRESSION [None]
  - MYOCARDIAL INFARCTION [None]
